FAERS Safety Report 6968271 (Version 2)
Quarter: 2020Q3

REPORT INFORMATION
  Report Type: Report from Study
  Country: US (occurrence: US)
  Receive Date: 20090414
  Receipt Date: 20090622
  Transmission Date: 20201104
  Serious: Yes (Death, Hospitalization)
  Sender: FDA-Public Use
  Company Number: US-ROCHE-625845

PATIENT
  Age: 72 Year
  Sex: Female

DRUGS (1)
  1. IBANDRONIC ACID. [Suspect]
     Active Substance: IBANDRONIC ACID
     Indication: PRODUCT USED FOR UNKNOWN INDICATION
     Route: 065

REACTIONS (5)
  - Cardiac disorder [Unknown]
  - Acute respiratory failure [Fatal]
  - Atrioventricular block [None]
  - Hypoxic-ischaemic encephalopathy [Fatal]
  - Fluid retention [Unknown]

NARRATIVE: CASE EVENT DATE: 20080301
